FAERS Safety Report 21481106 (Version 1)
Quarter: 2022Q4

REPORT INFORMATION
  Report Type: Other
  Country: DE (occurrence: None)
  Receive Date: 20221019
  Receipt Date: 20221019
  Transmission Date: 20230113
  Serious: No
  Sender: FDA-Public Use
  Company Number: DE-ROCHE-3203134

PATIENT
  Age: 38 Year
  Sex: Male

DRUGS (3)
  1. OCRELIZUMAB [Suspect]
     Active Substance: OCRELIZUMAB
     Indication: Relapsing multiple sclerosis
     Route: 042
     Dates: start: 20190510, end: 20190527
  2. OCRELIZUMAB [Suspect]
     Active Substance: OCRELIZUMAB
     Route: 042
     Dates: start: 20191108
  3. COMIRNATY [Concomitant]
     Active Substance: TOZINAMERAN
     Indication: COVID-19 immunisation
     Route: 030
     Dates: start: 20211211, end: 20211211

REACTIONS (1)
  - Coronavirus infection [Recovered/Resolved]

NARRATIVE: CASE EVENT DATE: 20220110
